FAERS Safety Report 18200226 (Version 3)
Quarter: 2020Q4

REPORT INFORMATION
  Report Type: Spontaneous
  Country: US (occurrence: US)
  Receive Date: 20200826
  Receipt Date: 20201123
  Transmission Date: 20210113
  Serious: Yes (Congenital Anomaly, Other)
  Sender: FDA-Public Use
  Company Number: NVSC2020US234875

PATIENT
  Age: 0 Day
  Sex: Male

DRUGS (2)
  1. ZOFRAN [Suspect]
     Active Substance: ONDANSETRON HYDROCHLORIDE
     Indication: FOETAL EXPOSURE DURING PREGNANCY
     Dosage: MOTHER DOSE: 08 MG, Q6H, AS NEEDED (PRN)
     Route: 064
  2. ZOFRAN [Suspect]
     Active Substance: ONDANSETRON HYDROCHLORIDE
     Indication: FOETAL EXPOSURE DURING PREGNANCY
     Route: 064

REACTIONS (22)
  - Micrognathia [Unknown]
  - Bronchial hyperreactivity [Unknown]
  - Emotional distress [Unknown]
  - Eating disorder [Unknown]
  - Seizure [Unknown]
  - Speech disorder developmental [Unknown]
  - Tooth hypoplasia [Unknown]
  - Failure to thrive [Unknown]
  - Premature baby [Unknown]
  - Developmental delay [Unknown]
  - Pain [Unknown]
  - Liver disorder [Unknown]
  - Cleft palate [Unknown]
  - Otospondylomegaepiphyseal dysplasia [Unknown]
  - Foetal exposure during pregnancy [Unknown]
  - Injury [Unknown]
  - Chronic respiratory disease [Unknown]
  - Bronchitis [Unknown]
  - Autism spectrum disorder [Unknown]
  - Anxiety [Unknown]
  - Asthma [Unknown]
  - Gastrooesophageal reflux disease [Unknown]

NARRATIVE: CASE EVENT DATE: 20110904
